FAERS Safety Report 9219557 (Version 1)
Quarter: 2013Q2

REPORT INFORMATION
  Report Type: Spontaneous
  Country: US (occurrence: None)
  Receive Date: 20130405
  Receipt Date: 20130405
  Transmission Date: 20140414
  Serious: Yes (Death)
  Sender: FDA-Public Use
  Company Number: CLCY20130065

PATIENT
  Age: 84 Year
  Sex: Male
  Weight: 95.26 kg

DRUGS (2)
  1. COLCRYS [Suspect]
     Indication: GOUT
     Dates: start: 2012, end: 20130327
  2. COUMADIN [Suspect]
     Indication: ATRIAL FIBRILLATION

REACTIONS (1)
  - Haemorrhagic stroke [None]
